FAERS Safety Report 10749925 (Version 5)
Quarter: 2015Q2

REPORT INFORMATION
  Report Type: Spontaneous
  Country: FR (occurrence: FR)
  Receive Date: 20150129
  Receipt Date: 20150417
  Transmission Date: 20150821
  Serious: Yes (Hospitalization, Other)
  Sender: FDA-Public Use
  Company Number: FR-ROCHE-1526857

PATIENT
  Age: 46 Year
  Sex: Female
  Weight: 44 kg

DRUGS (3)
  1. KADCYLA [Suspect]
     Active Substance: ADO-TRASTUZUMAB EMTANSINE
     Indication: HER-2 POSITIVE BREAST CANCER
     Route: 042
     Dates: start: 20150120, end: 20150120
  2. ZOPHREN [Concomitant]
     Active Substance: ONDANSETRON
     Indication: VOMITING
     Route: 042
     Dates: start: 20150120, end: 20150120
  3. METHYLPREDNISOLONE. [Concomitant]
     Active Substance: METHYLPREDNISOLONE
     Indication: VOMITING
     Route: 042
     Dates: start: 20150120, end: 20150120

REACTIONS (10)
  - Pain in extremity [Unknown]
  - Catheter site inflammation [Recovered/Resolved]
  - Extravasation [Recovered/Resolved]
  - Implant site oedema [Recovered/Resolved]
  - Systemic inflammatory response syndrome [Unknown]
  - Catheter site pain [Recovered/Resolved]
  - Implant site pain [Recovered/Resolved]
  - Implant site reaction [Recovered/Resolved]
  - Pyrexia [Recovered/Resolved]
  - Oedema [Unknown]

NARRATIVE: CASE EVENT DATE: 20150120
